FAERS Safety Report 7318190-X (Version None)
Quarter: 2011Q1

REPORT INFORMATION
  Report Type: 
  Country: None (occurrence: None)
  Receive Date: 20110228
  Receipt Date: 20110214
  Transmission Date: 20110831
  Serious: No
  Sender: FDA-Public Use
  Company Number: US-BIOGENIDEC-2011BI006367

PATIENT
  Age: 49 Year
  Sex: Female

DRUGS (2)
  1. TYSABRI [Suspect]
     Indication: MULTIPLE SCLEROSIS
     Route: 042
     Dates: start: 20090415
  2. TYSABRI [Suspect]
     Route: 042
     Dates: start: 20070118, end: 20080529

REACTIONS (3)
  - COORDINATION ABNORMAL [None]
  - DRUG INEFFECTIVE [None]
  - URINARY TRACT INFECTION [None]
